FAERS Safety Report 21765835 (Version 1)
Quarter: 2022Q4

REPORT INFORMATION
  Report Type: Spontaneous
  Country: US (occurrence: None)
  Receive Date: 20221221
  Receipt Date: 20221221
  Transmission Date: 20230112
  Serious: No
  Sender: FDA-Public Use
  Company Number: None

PATIENT
  Age: 75 Year
  Sex: 0

DRUGS (1)
  1. AMBRISENTAN [Suspect]
     Active Substance: AMBRISENTAN
     Indication: Pulmonary arterial hypertension
     Dosage: FREQUENCY : DAILY;?
     Route: 048

REACTIONS (11)
  - COVID-19 [None]
  - Oxygen saturation decreased [None]
  - Dyspnoea exertional [None]
  - Diarrhoea [None]
  - Fatigue [None]
  - Cough [None]
  - Exposure to fungus [None]
  - Exposure to toxic agent [None]
  - Productive cough [None]
  - Treatment delayed [None]
  - Lung disorder [None]

NARRATIVE: CASE EVENT DATE: 20221220
